FAERS Safety Report 13478448 (Version 4)
Quarter: 2023Q1

REPORT INFORMATION
  Report Type: Report from Study
  Country: NL (occurrence: NL)
  Receive Date: 20170424
  Receipt Date: 20230306
  Transmission Date: 20230418
  Serious: Yes (Death)
  Sender: FDA-Public Use
  Company Number: NL-ABBVIE-17P-114-1949624-00

PATIENT
  Age: 61 Year
  Sex: Male

DRUGS (12)
  1. HUMIRA [Suspect]
     Active Substance: ADALIMUMAB
     Indication: Psoriasis
     Route: 058
     Dates: start: 20090701, end: 20090701
  2. HUMIRA [Suspect]
     Active Substance: ADALIMUMAB
     Route: 058
     Dates: end: 20090710
  3. ACENOCOUMAROL [Concomitant]
     Active Substance: ACENOCOUMAROL
     Indication: Arrhythmia
     Dosage: DEPENDING ON BLOOD TEST
     Dates: start: 201508
  4. ROSUVASTATIN [Concomitant]
     Active Substance: ROSUVASTATIN
     Indication: Hypercholesterolaemia
     Dates: start: 2005
  5. METOPROLOLTARTRATE [Concomitant]
     Indication: Arrhythmia
     Dates: start: 20090607
  6. USTEKINUMAB [Concomitant]
     Active Substance: USTEKINUMAB
     Indication: Psoriasis
     Dosage: WEEK 0, WEEK 4 AND THAN EVERY 3 MONTHS
     Dates: start: 20091207
  7. GENTAMICIN [Concomitant]
     Active Substance: GENTAMICIN
     Indication: Endocarditis
     Dates: start: 20120901, end: 20121013
  8. PENICILLIN [Concomitant]
     Active Substance: PENICILLIN
     Indication: Endocarditis
     Dosage: 2 MILLION UNITS
     Dates: start: 20120901, end: 20121013
  9. METRONIDAZOLE [Concomitant]
     Active Substance: METRONIDAZOLE
     Indication: Endocarditis
     Dates: start: 20120901, end: 20121013
  10. OXYCODONE HYDROCHLORIDE [Concomitant]
     Active Substance: OXYCODONE HYDROCHLORIDE
     Indication: Lung neoplasm malignant
     Dates: start: 20170405
  11. OXYCONTIN ESCAPE [Concomitant]
     Indication: Lung neoplasm malignant
     Dates: start: 20170405
  12. OXYCONTIN [Concomitant]
     Active Substance: OXYCODONE HYDROCHLORIDE
     Indication: Lung neoplasm malignant
     Dates: start: 20170405

REACTIONS (2)
  - Bronchial carcinoma [Fatal]
  - Lung cancer metastatic [Fatal]

NARRATIVE: CASE EVENT DATE: 20170331
